FAERS Safety Report 13183162 (Version 1)
Quarter: 2017Q1

REPORT INFORMATION
  Report Type: Spontaneous
  Country: BR (occurrence: BR)
  Receive Date: 20170203
  Receipt Date: 20170203
  Transmission Date: 20170428
  Serious: Yes (Other)
  Sender: FDA-Public Use
  Company Number: BR-PFIZER INC-2017046265

PATIENT
  Age: 60 Year
  Sex: Female
  Weight: 85 kg

DRUGS (2)
  1. LYRICA [Suspect]
     Active Substance: PREGABALIN
     Indication: NEURALGIA
  2. LYRICA [Suspect]
     Active Substance: PREGABALIN
     Indication: FIBROMYALGIA
     Dosage: 150 MG, 1X/DAY
     Route: 048

REACTIONS (5)
  - Meniere^s disease [Recovered/Resolved]
  - Tinnitus [Unknown]
  - Condition aggravated [Recovered/Resolved]
  - Hyperhidrosis [Unknown]
  - Confusional state [Unknown]
